FAERS Safety Report 9475014 (Version 1)
Quarter: 2013Q3

REPORT INFORMATION
  Report Type: Spontaneous
  Country: IT (occurrence: IT)
  Receive Date: 20130824
  Receipt Date: 20130824
  Transmission Date: 20140515
  Serious: Yes (Life-Threatening, Other)
  Sender: FDA-Public Use
  Company Number: IT-ACCORD-019068

PATIENT
  Age: 81 Year
  Sex: Female

DRUGS (1)
  1. PACLITAXEL [Suspect]
     Indication: LEIOMYOSARCOMA RECURRENT
     Route: 042

REACTIONS (4)
  - Respiratory arrest [Recovered/Resolved with Sequelae]
  - Hypotension [Recovered/Resolved with Sequelae]
  - Rash [Recovered/Resolved with Sequelae]
  - Off label use [Unknown]
